FAERS Safety Report 10035563 (Version 1)
Quarter: 2014Q1

REPORT INFORMATION
  Report Type: Spontaneous
  Country: US (occurrence: US)
  Receive Date: 20140325
  Receipt Date: 20140325
  Transmission Date: 20141002
  Serious: No
  Sender: FDA-Public Use
  Company Number: US-PFIZER INC-2014083508

PATIENT
  Age: 64 Year
  Sex: Female
  Weight: 87.1 kg

DRUGS (2)
  1. LYRICA [Suspect]
     Indication: NERVE INJURY
     Dosage: 75 MG, 2X/DAY
     Dates: start: 2005
  2. TRIBENZOR [Concomitant]
     Indication: BLOOD PRESSURE ABNORMAL
     Dosage: AMLODIPINE BESILATE (10MG), HYDROCHLOROTHIAZIDE (25MG) , OLMESARTAN MEDOXOMIL (40 MG), 1X/DAY

REACTIONS (1)
  - Weight increased [Unknown]
